FAERS Safety Report 21242982 (Version 1)
Quarter: 2022Q3

REPORT INFORMATION
  Report Type: Spontaneous
  Country: AU (occurrence: AU)
  Receive Date: 20220823
  Receipt Date: 20220823
  Transmission Date: 20221027
  Serious: Yes (Other)
  Sender: FDA-Public Use
  Company Number: AU-PFIZER INC-PV202200046033

PATIENT
  Age: 56 Year
  Sex: Female

DRUGS (18)
  1. ATORVASTATIN [Suspect]
     Active Substance: ATORVASTATIN
     Dosage: UNK
  2. ACETAMINOPHEN [Suspect]
     Active Substance: ACETAMINOPHEN
     Dosage: UNK
  3. ASPIRIN [Suspect]
     Active Substance: ASPIRIN
     Dosage: UNK
  4. ATROPINE SULFATE [Suspect]
     Active Substance: ATROPINE SULFATE
     Dosage: UNK
  5. CLOZAPINE [Suspect]
     Active Substance: CLOZAPINE
     Dosage: UNK
  6. CLOZAPINE [Suspect]
     Active Substance: CLOZAPINE
     Dosage: UNK
  7. PREGABALIN [Suspect]
     Active Substance: PREGABALIN
     Dosage: UNK
  8. DOCUSATE SODIUM\SENNOSIDE B [Suspect]
     Active Substance: DOCUSATE SODIUM\SENNOSIDE B
     Dosage: UNK
  9. LITHIUM [Suspect]
     Active Substance: LITHIUM
  10. TEMAZEPAM [Suspect]
     Active Substance: TEMAZEPAM
     Dosage: UNK
  11. CRESTOR [Suspect]
     Active Substance: ROSUVASTATIN CALCIUM
     Dosage: UNK
  12. DICLOFENAC [Suspect]
     Active Substance: DICLOFENAC
     Dosage: UNK
  13. GLICLAZIDE [Suspect]
     Active Substance: GLICLAZIDE
     Dosage: UNK
  14. METFORMIN HYDROCHLORIDE [Suspect]
     Active Substance: METFORMIN HYDROCHLORIDE
     Dosage: UNK
  15. OLANZAPINE [Suspect]
     Active Substance: OLANZAPINE
     Dosage: UNK
  16. PERINDOPRIL [Suspect]
     Active Substance: PERINDOPRIL
     Dosage: UNK
  17. QUETIAPINE [Suspect]
     Active Substance: QUETIAPINE
     Dosage: UNK
  18. VALPROATE SODIUM [Suspect]
     Active Substance: VALPROATE SODIUM
     Dosage: UNK

REACTIONS (29)
  - Bipolar I disorder [Unknown]
  - Cardiomyopathy [Unknown]
  - Consciousness fluctuating [Unknown]
  - Cerebral infarction [Unknown]
  - Delirium [Unknown]
  - Drug ineffective [Unknown]
  - Affect lability [Unknown]
  - Anger [Unknown]
  - Anosognosia [Unknown]
  - Autonomic nervous system imbalance [Unknown]
  - Balance disorder [Unknown]
  - Behaviour disorder [Unknown]
  - Catatonia [Unknown]
  - Contusion [Unknown]
  - Delusion [Unknown]
  - Delusion of grandeur [Unknown]
  - Emotional distress [Unknown]
  - Fall [Unknown]
  - Abdominal pain [Unknown]
  - Agitated depression [Unknown]
  - Agitation [Unknown]
  - Amnesia [Unknown]
  - Anxiety [Unknown]
  - Arthralgia [Unknown]
  - Blood creatine phosphokinase increased [Unknown]
  - Constipation [Unknown]
  - Dehydration [Unknown]
  - Euphoric mood [Unknown]
  - Fatigue [Unknown]
